FAERS Safety Report 5115420-X (Version None)
Quarter: 2006Q3

REPORT INFORMATION
  Report Type: 
  Country: None (occurrence: None)
  Receive Date: 20060921
  Receipt Date: 20060920
  Transmission Date: 20061208
  Serious: Yes (Hospitalization, Other)
  Sender: FDA-Public Use
  Company Number: HQWYE164319JUL06

PATIENT
  Age: 48 Year
  Sex: Male

DRUGS (12)
  1. CYCLOSPORINE [Suspect]
     Indication: PROPHYLAXIS AGAINST TRANSPLANT REJECTION
     Dosage: SEE IMAGE
     Route: 048
     Dates: start: 20051226, end: 20060625
  2. CYCLOSPORINE [Suspect]
     Indication: PROPHYLAXIS AGAINST TRANSPLANT REJECTION
     Dosage: SEE IMAGE
     Route: 048
     Dates: start: 20060626
  3. MYCOPHENOLATE MOFETIL [Suspect]
     Indication: PROPHYLAXIS AGAINST TRANSPLANT REJECTION
     Dosage: SEE IMAGE, ORAL
     Route: 048
     Dates: start: 20051226, end: 20060706
  4. MYCOPHENOLATE MOFETIL [Suspect]
     Indication: PROPHYLAXIS AGAINST TRANSPLANT REJECTION
     Dosage: SEE IMAGE, ORAL
     Route: 048
     Dates: start: 20060707, end: 20060709
  5. MYCOPHENOLATE MOFETIL [Suspect]
     Indication: PROPHYLAXIS AGAINST TRANSPLANT REJECTION
     Dosage: SEE IMAGE, ORAL
     Route: 048
     Dates: start: 20060710, end: 20060711
  6. PREDNISOLONE [Concomitant]
  7. FERROUS SULFATE TAB [Concomitant]
  8. LISINOPRIL [Concomitant]
  9. SODIUM BICARBONATE IN PLASTIC CONTAINER [Concomitant]
  10. VALGANCICLOVIR HCL [Concomitant]
  11. SULFAMETHOXAZOLE + TRIMETHOPRIM [Concomitant]
  12. ATORVASTATIN CALCIUM [Concomitant]

REACTIONS (2)
  - NEUTROPENIA [None]
  - WHITE BLOOD CELL COUNT DECREASED [None]
